FAERS Safety Report 15849780 (Version 1)
Quarter: 2019Q1

REPORT INFORMATION
  Report Type: Report from Study
  Country: BR (occurrence: BR)
  Receive Date: 20190121
  Receipt Date: 20190121
  Transmission Date: 20190417
  Serious: Yes (Hospitalization, Other)
  Sender: FDA-Public Use
  Company Number: PHHY2019BR010130

PATIENT
  Age: 73 Year
  Sex: Female

DRUGS (4)
  1. EXELON PATCH [Suspect]
     Active Substance: RIVASTIGMINE
     Dosage: 9.5 MG, QD
     Route: 062
  2. EXELON PATCH [Suspect]
     Active Substance: RIVASTIGMINE
     Indication: SENILE DEMENTIA
     Dosage: 4.6 MG, QD
     Route: 062
     Dates: start: 200512
  3. EXELON [Suspect]
     Active Substance: RIVASTIGMINE TARTRATE
     Indication: SENILE DEMENTIA
     Dosage: UNK
     Route: 048
     Dates: start: 20051012, end: 200512
  4. EXELON PATCH [Suspect]
     Active Substance: RIVASTIGMINE
     Dosage: 13.3 MG, QD
     Route: 062

REACTIONS (9)
  - Pancreatitis [Unknown]
  - Hypoglycaemia [Not Recovered/Not Resolved]
  - Gastrointestinal disorder [Recovering/Resolving]
  - Weight decreased [Unknown]
  - Product use in unapproved indication [Unknown]
  - Drug ineffective [Unknown]
  - Femur fracture [Unknown]
  - Coma [Unknown]
  - Hepatic enzyme increased [Unknown]

NARRATIVE: CASE EVENT DATE: 200512
